FAERS Safety Report 9695348 (Version 2)
Quarter: 2014Q1

REPORT INFORMATION
  Report Type: Spontaneous
  Country: US (occurrence: US)
  Receive Date: 20131119
  Receipt Date: 20140124
  Transmission Date: 20141002
  Serious: Yes (Death, Other)
  Sender: FDA-Public Use
  Company Number: US-OTSUKA-US-2013-12120

PATIENT
  Age: 44 Year
  Sex: Female

DRUGS (21)
  1. ABILIFY MAINTENA [Suspect]
     Indication: SCHIZOPHRENIA
     Dosage: 400 MG MILLIGRAM(S), MONTHLY
     Route: 030
     Dates: start: 20130626, end: 2013
  2. LIPITOR [Concomitant]
     Indication: PRODUCT USED FOR UNKNOWN INDICATION
  3. PROTONIX [Concomitant]
     Indication: PRODUCT USED FOR UNKNOWN INDICATION
  4. COLACE [Concomitant]
     Indication: PRODUCT USED FOR UNKNOWN INDICATION
  5. VOLTAREN [Concomitant]
     Indication: PRODUCT USED FOR UNKNOWN INDICATION
  6. TYLENOL [Concomitant]
     Indication: PRODUCT USED FOR UNKNOWN INDICATION
  7. SENNA [Concomitant]
     Indication: PRODUCT USED FOR UNKNOWN INDICATION
  8. LEVOTHYROXIN [Concomitant]
     Indication: PRODUCT USED FOR UNKNOWN INDICATION
  9. FEOSOL [Concomitant]
     Indication: PRODUCT USED FOR UNKNOWN INDICATION
  10. VITAMIN D2 [Concomitant]
     Indication: PRODUCT USED FOR UNKNOWN INDICATION
  11. LEVETIRACETAM [Concomitant]
     Indication: PRODUCT USED FOR UNKNOWN INDICATION
  12. ROPINIROLE [Concomitant]
     Indication: PRODUCT USED FOR UNKNOWN INDICATION
     Dosage: UNK MG MILLIGRAM(S), UNK
  13. TRAZODONE [Concomitant]
     Indication: PRODUCT USED FOR UNKNOWN INDICATION
     Dosage: 100 MG MILLIGRAM(S), HS
     Dates: end: 20130120
  14. ZOLOFT [Concomitant]
     Indication: PRODUCT USED FOR UNKNOWN INDICATION
     Dosage: 150 MG MILLIGRAM(S), QD
  15. COGENTIN [Concomitant]
     Indication: PRODUCT USED FOR UNKNOWN INDICATION
     Dosage: 2 MG MILLIGRAM(S), BID
  16. ATIVAN [Concomitant]
     Indication: PRODUCT USED FOR UNKNOWN INDICATION
     Dosage: 0.5 MG MILLIGRAM(S), HS
  17. ATIVAN [Concomitant]
     Dosage: 1 MG MILLIGRAM(S), Q6HR PRN
  18. HALDOL [Concomitant]
     Indication: PRODUCT USED FOR UNKNOWN INDICATION
     Dosage: 2.5 MG MILLIGRAM(S), Q4HR
  19. RISPERDAL [Concomitant]
     Indication: PRODUCT USED FOR UNKNOWN INDICATION
     Dosage: 3 MG MILLIGRAM(S), BID
  20. LITHIUM [Concomitant]
     Indication: PRODUCT USED FOR UNKNOWN INDICATION
     Dosage: 450 MG MILLIGRAM(S), BID
     Dates: end: 201310
  21. LITHIUM [Concomitant]
     Dosage: 300 MG MILLIGRAM(S), BID
     Dates: start: 201310

REACTIONS (7)
  - Death [Fatal]
  - Respiratory disorder [Unknown]
  - Weight decreased [Unknown]
  - Decreased appetite [Unknown]
  - Abdominal discomfort [Unknown]
  - Vomiting [Unknown]
  - Asthenia [Unknown]
